FAERS Safety Report 20328855 (Version 2)
Quarter: 2022Q1

REPORT INFORMATION
  Report Type: Spontaneous
  Country: CN (occurrence: CN)
  Receive Date: 20220112
  Receipt Date: 20220131
  Transmission Date: 20220423
  Serious: Yes (Other)
  Sender: FDA-Public Use
  Company Number: CN-ABBVIE-22K-035-4223421-00

PATIENT
  Age: 2 Year
  Sex: Female

DRUGS (4)
  1. VALPROATE SODIUM [Suspect]
     Active Substance: VALPROATE SODIUM
     Indication: Epilepsy
     Route: 048
  2. VALPROATE SODIUM [Suspect]
     Active Substance: VALPROATE SODIUM
     Route: 065
  3. SABRIL [Suspect]
     Active Substance: VIGABATRIN
     Indication: Epilepsy
     Route: 065
  4. SABRIL [Suspect]
     Active Substance: VIGABATRIN
     Route: 065

REACTIONS (7)
  - Loss of consciousness [Recovering/Resolving]
  - Hyperammonaemic encephalopathy [Recovering/Resolving]
  - Generalised tonic-clonic seizure [Unknown]
  - Epilepsy [Unknown]
  - Muscle twitching [Unknown]
  - Movement disorder [Unknown]
  - Diarrhoea [Unknown]
